FAERS Safety Report 20669702 (Version 1)
Quarter: 2022Q2

REPORT INFORMATION
  Report Type: Spontaneous
  Country: GB (occurrence: GB)
  Receive Date: 20220404
  Receipt Date: 20220404
  Transmission Date: 20220721
  Serious: Yes (Other)
  Sender: FDA-Public Use
  Company Number: GB-MHRA-MED-202203251600596440-ATQGX

PATIENT
  Age: 81 Year
  Sex: Female

DRUGS (1)
  1. PALBOCICLIB [Suspect]
     Active Substance: PALBOCICLIB
     Indication: Breast cancer
     Dosage: 75MG ONCE A DAY FOR 21 DAYS (28 DAY CYCLE);
     Dates: start: 20201215

REACTIONS (1)
  - Blepharitis [Not Recovered/Not Resolved]
